FAERS Safety Report 8161420-5 (Version None)
Quarter: 2012Q1

REPORT INFORMATION
  Report Type: 
  Country: None (occurrence: None)
  Receive Date: 20120224
  Receipt Date: 20120217
  Transmission Date: 20120608
  Serious: Yes (Other)
  Sender: FDA-Public Use
  Company Number: US-SANOFI-AVENTIS-2012SA011643

PATIENT
  Sex: Female

DRUGS (11)
  1. NOVOLOG [Concomitant]
  2. SIMVASTATIN [Concomitant]
  3. HUMAN GROWTH HORMONE, RECOMBINANT [Concomitant]
  4. VITAMIN TAB [Concomitant]
  5. LISINOPRIL [Concomitant]
  6. LANTUS [Suspect]
     Indication: TYPE 2 DIABETES MELLITUS
     Dosage: 80-90 UNITS TWICE DAILY
     Route: 058
     Dates: start: 20100101
  7. SOLOSTAR [Suspect]
     Indication: TYPE 2 DIABETES MELLITUS
     Dates: start: 20100101
  8. METFORMIN HCL [Concomitant]
  9. THYROXIN [Concomitant]
  10. ASPIRIN [Concomitant]
  11. OTHER HORMONES [Concomitant]

REACTIONS (1)
  - HYPOPITUITARISM [None]
